FAERS Safety Report 20930484 (Version 1)
Quarter: 2022Q2

REPORT INFORMATION
  Report Type: Spontaneous
  Country: US (occurrence: US)
  Receive Date: 20220608
  Receipt Date: 20220608
  Transmission Date: 20220721
  Serious: No
  Sender: FDA-Public Use
  Company Number: US-PERRIGO-22US005724

PATIENT
  Age: 85 Year
  Sex: Male
  Weight: 99.773 kg

DRUGS (3)
  1. MINOXIDIL [Suspect]
     Active Substance: MINOXIDIL
     Indication: Alopecia
     Dosage: 1/2 CAP, BID
     Route: 061
     Dates: start: 20211001, end: 20221201
  2. MINOXIDIL [Suspect]
     Active Substance: MINOXIDIL
     Dosage: 1/2 CAP, BID
     Route: 061
     Dates: start: 20220301
  3. ELIQUIS [Concomitant]
     Active Substance: APIXABAN
     Indication: Prophylaxis
     Dosage: UNK
     Route: 065
     Dates: start: 2019

REACTIONS (1)
  - Drug ineffective [Unknown]

NARRATIVE: CASE EVENT DATE: 20211001
